FAERS Safety Report 20124667 (Version 1)
Quarter: 2021Q4

REPORT INFORMATION
  Report Type: Spontaneous
  Country: US (occurrence: None)
  Receive Date: 20211126
  Receipt Date: 20211126
  Transmission Date: 20220303
  Serious: Yes (Hospitalization)
  Sender: FDA-Public Use
  Company Number: None

PATIENT
  Age: 71 Year
  Sex: Male

DRUGS (1)
  1. DABIGATRAN ETEXILATE [Suspect]
     Active Substance: DABIGATRAN ETEXILATE
     Indication: Atrial fibrillation
     Dosage: FREQUENCY : TWICE A DAY;?
     Route: 048
     Dates: start: 20180425, end: 20211101

REACTIONS (4)
  - Neck pain [None]
  - Jugular vein thrombosis [None]
  - Therapeutic response decreased [None]
  - Subclavian vein thrombosis [None]

NARRATIVE: CASE EVENT DATE: 20211101
